FAERS Safety Report 21880861 (Version 3)
Quarter: 2023Q1

REPORT INFORMATION
  Report Type: Report from Study
  Country: PL (occurrence: PL)
  Receive Date: 20230118
  Receipt Date: 20230131
  Transmission Date: 20230417
  Serious: Yes (Hospitalization, Other)
  Sender: FDA-Public Use
  Company Number: PL-JAZZ-2022-PL-037801

PATIENT
  Age: 65 Year
  Sex: Female
  Weight: 49 kg

DRUGS (21)
  1. LURBINECTEDIN [Suspect]
     Active Substance: LURBINECTEDIN
     Indication: Small cell lung cancer
     Dosage: 4.74 MG,1 IN 3 WK
     Route: 042
     Dates: start: 20221104
  2. LURBINECTEDIN [Suspect]
     Active Substance: LURBINECTEDIN
     Dosage: 4.72 MILLIGRAM
     Route: 042
     Dates: start: 20221216
  3. ATEZOLIZUMAB [Suspect]
     Active Substance: ATEZOLIZUMAB
     Indication: Small cell lung cancer
     Dosage: 1200 MILLIGRAM EVERY 3 WEEK
     Route: 042
     Dates: start: 20220706
  4. ATEZOLIZUMAB [Suspect]
     Active Substance: ATEZOLIZUMAB
     Dosage: 1200 MILLIGRAM ONE IN  3 WEEK
     Route: 042
     Dates: start: 20220801
  5. ATEZOLIZUMAB [Suspect]
     Active Substance: ATEZOLIZUMAB
     Dosage: 1200 MILLIGRAM ONE IN  3 WEEK
     Route: 042
     Dates: start: 20221216
  6. CARBOPLATIN [Suspect]
     Active Substance: CARBOPLATIN
     Indication: Small cell lung cancer
     Dosage: 458.46 MILLIGRAM
     Route: 042
     Dates: start: 20220706
  7. CARBOPLATIN [Suspect]
     Active Substance: CARBOPLATIN
     Dosage: 422.46 MILLIGRAM
     Route: 042
     Dates: start: 20220801
  8. CARBOPLATIN [Suspect]
     Active Substance: CARBOPLATIN
     Dosage: 466.9 MILLIGRAM
     Route: 042
     Dates: start: 20220926
  9. ETOPOSIDE [Suspect]
     Active Substance: ETOPOSIDE
     Indication: Small cell lung cancer
     Dosage: 148.08 MILLIGRAM
     Dates: start: 20220706
  10. ETOPOSIDE [Suspect]
     Active Substance: ETOPOSIDE
     Dosage: 148.08 MILLIGRAM
     Dates: start: 20220803
  11. ETOPOSIDE [Suspect]
     Active Substance: ETOPOSIDE
     Dosage: 150.14 MILLIGRAM
     Dates: start: 20220928
  12. NEBIVOLOL [Concomitant]
     Active Substance: NEBIVOLOL
     Indication: Hypertension
     Dosage: UNK
     Dates: start: 2000
  13. RAMIPRIL [Concomitant]
     Active Substance: RAMIPRIL
     Indication: Hypertension
     Dosage: UNK
     Dates: start: 2000
  14. RAMIPRIL [Concomitant]
     Active Substance: RAMIPRIL
     Indication: Prophylaxis
  15. ROSUVASTATIN [Concomitant]
     Active Substance: ROSUVASTATIN
     Dosage: UNK
     Dates: start: 2015
  16. PRAZOL [OMEPRAZOLE] [Concomitant]
     Indication: Prophylaxis
     Dosage: UNK
     Dates: start: 202201
  17. PRAZOL [OMEPRAZOLE] [Concomitant]
     Indication: Gastritis
  18. MORPHINE SULFATE [Concomitant]
     Active Substance: MORPHINE SULFATE
     Indication: Cough
     Dosage: UNK
     Dates: start: 20220707
  19. FUROSEMIDE [Concomitant]
     Active Substance: FUROSEMIDE
     Indication: Peripheral swelling
     Dosage: UNK
     Dates: start: 20220828
  20. FLUDROCORTISONE [Concomitant]
     Active Substance: FLUDROCORTISONE
     Indication: Hyponatraemia
     Dosage: 1 DF,2 IN 1 D
     Route: 048
     Dates: start: 20220705
  21. DICLOFENAC SODIUM [Concomitant]
     Active Substance: DICLOFENAC SODIUM
     Indication: Contusion
     Dosage: UNK
     Dates: start: 20221205

REACTIONS (2)
  - Panniculitis [Recovered/Resolved]
  - Neutropenia [Recovered/Resolved]

NARRATIVE: CASE EVENT DATE: 20220821
